FAERS Safety Report 13489027 (Version 1)
Quarter: 2017Q2

REPORT INFORMATION
  Report Type: Spontaneous
  Country: US (occurrence: US)
  Receive Date: 20170426
  Receipt Date: 20170426
  Transmission Date: 20170830
  Serious: Yes (Other)
  Sender: FDA-Public Use
  Company Number: None

PATIENT
  Age: 47 Year
  Sex: Female
  Weight: 90 kg

DRUGS (1)
  1. LEVAQUIN [Suspect]
     Active Substance: LEVOFLOXACIN
     Indication: SINUSITIS
     Route: 048
     Dates: start: 20160405, end: 20160414

REACTIONS (13)
  - Back pain [None]
  - Pain in extremity [None]
  - Intervertebral disc degeneration [None]
  - Fatigue [None]
  - Arthralgia [None]
  - Weight increased [None]
  - Loss of personal independence in daily activities [None]
  - Economic problem [None]
  - Abasia [None]
  - Osteoarthritis [None]
  - Impaired quality of life [None]
  - Swelling [None]
  - Emotional distress [None]

NARRATIVE: CASE EVENT DATE: 20160414
